FAERS Safety Report 23858541 (Version 1)
Quarter: 2024Q2

REPORT INFORMATION
  Report Type: Spontaneous
  Country: US (occurrence: None)
  Receive Date: 20240514
  Receipt Date: 20240514
  Transmission Date: 20240716
  Serious: Yes (Disabling)
  Sender: FDA-Public Use
  Company Number: None

PATIENT
  Age: 59 Year
  Sex: Female
  Weight: 85.5 kg

DRUGS (11)
  1. RECLAST [Suspect]
     Active Substance: ZOLEDRONIC ACID
     Indication: Osteoporosis
     Dates: start: 20230814, end: 20230814
  2. AMITRIPTYLINE [Concomitant]
     Active Substance: AMITRIPTYLINE
  3. BACLOFEN [Concomitant]
     Active Substance: BACLOFEN
  4. MS CONTIN [Concomitant]
     Active Substance: MORPHINE SULFATE
  5. PERCOCET [Concomitant]
     Active Substance: ACETAMINOPHEN\OXYCODONE HYDROCHLORIDE
  6. GABAPENTIN [Concomitant]
     Active Substance: GABAPENTIN
  7. monolucastat [Concomitant]
  8. TAMOXIFEN [Concomitant]
     Active Substance: TAMOXIFEN
  9. PREVACID [Concomitant]
     Active Substance: LANSOPRAZOLE
  10. CALCIUM [Concomitant]
     Active Substance: CALCIUM
  11. VITAMIN D [Concomitant]
     Active Substance: VITAMIN D NOS

REACTIONS (13)
  - Infusion related reaction [None]
  - Middle insomnia [None]
  - Balance disorder [None]
  - Back pain [None]
  - Gait inability [None]
  - Arthralgia [None]
  - Cystitis [None]
  - Haemorrhage urinary tract [None]
  - Neck pain [None]
  - Drug ineffective [None]
  - Dysstasia [None]
  - Magnetic resonance imaging abnormal [None]
  - Inflammation [None]

NARRATIVE: CASE EVENT DATE: 20230814
